FAERS Safety Report 5325565-7 (Version None)
Quarter: 2007Q2

REPORT INFORMATION
  Report Type: 
  Country: None (occurrence: None)
  Receive Date: 20070515
  Receipt Date: 20070510
  Transmission Date: 20071010
  Serious: Yes (Hospitalization)
  Sender: FDA-Public Use
  Company Number: FR-BOEHRINGER INGELHEIM PHARMACEUTICALS, INC.-2007-FF-00571FF

PATIENT
  Age: 57 Year
  Sex: Female
  Weight: 87 kg

DRUGS (10)
  1. MICARDIS [Suspect]
     Route: 048
     Dates: start: 20051201
  2. GLUCOPHAGE [Concomitant]
     Route: 048
     Dates: start: 20041101
  3. IMODIUM [Concomitant]
     Dates: start: 20060101
  4. LYTOS [Concomitant]
  5. ALIMTA [Concomitant]
     Dosage: 500MG/M2
     Route: 042
     Dates: start: 20070201
  6. TARCEVA [Concomitant]
     Route: 048
     Dates: start: 20060101, end: 20070401
  7. GRANOCYTE [Concomitant]
     Indication: PROPHYLAXIS
  8. NEORECORMON [Concomitant]
     Indication: PROPHYLAXIS
  9. FOLIC ACID [Concomitant]
     Indication: VITAMIN SUPPLEMENTATION
  10. VITAMIN B-12 [Concomitant]
     Indication: VITAMIN SUPPLEMENTATION

REACTIONS (2)
  - PANCYTOPENIA [None]
  - RENAL FAILURE ACUTE [None]
